FAERS Safety Report 21795021 (Version 2)
Quarter: 2024Q3

REPORT INFORMATION
  Report Type: Report from Study
  Country: DE (occurrence: DE)
  Receive Date: 20221229
  Receipt Date: 20240729
  Transmission Date: 20241017
  Serious: Yes (Other)
  Sender: NOVARTIS
  Company Number: DE-002147023-NVSC2022DE131134

PATIENT
  Age: 52 Year
  Sex: Male

DRUGS (7)
  1. MAYZENT [Suspect]
     Active Substance: SIPONIMOD
     Indication: Secondary progressive multiple sclerosis
     Dosage: 2 MG, QD (INCLUDING DOSAGE TITRATION)
     Route: 048
     Dates: start: 20220113, end: 20221116
  2. MAYZENT [Suspect]
     Active Substance: SIPONIMOD
     Dosage: 2 MG EVERY 2 DAYS
     Route: 048
     Dates: start: 20221117, end: 20221129
  3. MAYZENT [Suspect]
     Active Substance: SIPONIMOD
     Dosage: 2 MG, QD
     Route: 048
     Dates: start: 20221130
  4. BENSERAZIDE\LEVODOPA [Concomitant]
     Active Substance: BENSERAZIDE\LEVODOPA
     Indication: Restless legs syndrome
     Dosage: 125 MG, QD
     Route: 048
     Dates: start: 202106
  5. CHOLECALCIFEROL [Concomitant]
     Active Substance: CHOLECALCIFEROL
     Indication: Vitamin D deficiency
     Dosage: 1000 IU, QD
     Route: 048
     Dates: start: 2017
  6. TAMSULOSIN [Concomitant]
     Active Substance: TAMSULOSIN
     Indication: Benign prostatic hyperplasia
     Dosage: 0.4 MG, QD
     Route: 048
  7. VITAMIN B12 [Concomitant]
     Active Substance: CYANOCOBALAMIN
     Indication: Vitamin B12 deficiency
     Dosage: 1000 UG, QD
     Route: 058
     Dates: start: 202107

REACTIONS (5)
  - Lymphopenia [Unknown]
  - Gamma-glutamyltransferase increased [Not Recovered/Not Resolved]
  - COVID-19 [Recovered/Resolved]
  - Depression [Not Recovered/Not Resolved]
  - Off label use [Recovered/Resolved]

NARRATIVE: CASE EVENT DATE: 20220524
